FAERS Safety Report 19997583 (Version 1)
Quarter: 2021Q4

REPORT INFORMATION
  Report Type: Spontaneous
  Country: PT (occurrence: PT)
  Receive Date: 20211026
  Receipt Date: 20211026
  Transmission Date: 20220303
  Serious: Yes (Hospitalization)
  Sender: FDA-Public Use
  Company Number: PT-MYLANLABS-2021M1076419

PATIENT
  Age: 33 Year
  Sex: Male

DRUGS (7)
  1. DONEPEZIL [Suspect]
     Active Substance: DONEPEZIL
     Indication: Early onset familial Alzheimer^s disease
     Dosage: 10 MILLIGRAM, QD, THERAPEUTIC REGIMEN
     Route: 065
  2. ESCITALOPRAM [Suspect]
     Active Substance: ESCITALOPRAM OXALATE
     Indication: Depression
     Dosage: 20 MILLIGRAM, QD
     Route: 065
  3. ESCITALOPRAM [Suspect]
     Active Substance: ESCITALOPRAM OXALATE
     Indication: Memory impairment
  4. PAROXETINE [Suspect]
     Active Substance: PAROXETINE
     Indication: Depression
     Dosage: UNK
     Route: 065
  5. PAROXETINE [Suspect]
     Active Substance: PAROXETINE
     Indication: Memory impairment
  6. MEXAZOLAM [Suspect]
     Active Substance: MEXAZOLAM
     Indication: Depression
     Dosage: 1 MILLIGRAM, QD
     Route: 065
  7. MEXAZOLAM [Suspect]
     Active Substance: MEXAZOLAM
     Indication: Memory impairment

REACTIONS (1)
  - Drug ineffective [Unknown]
